FAERS Safety Report 7313264-1 (Version None)
Quarter: 2011Q1

REPORT INFORMATION
  Report Type: 
  Country: None (occurrence: None)
  Receive Date: 20110215
  Receipt Date: 20110215
  Transmission Date: 20110831
  Serious: Yes (Hospitalization)
  Sender: FDA-Public Use
  Company Number: None

PATIENT
  Sex: Male
  Weight: 73.3 kg

DRUGS (3)
  1. VINCRISTINE SULFATE [Suspect]
     Dosage: 8 MG
     Dates: end: 20110128
  2. METHOTREXATE [Suspect]
     Dosage: 3760 MG
     Dates: end: 20110128
  3. MERCAPTOPURINE [Suspect]
     Dosage: 2750 MG
     Dates: end: 20110130

REACTIONS (8)
  - PHONOPHOBIA [None]
  - IRRITABILITY [None]
  - VIITH NERVE PARALYSIS [None]
  - PHOTOPHOBIA [None]
  - DYSPHAGIA [None]
  - HEADACHE [None]
  - DYSARTHRIA [None]
  - TOXICITY TO VARIOUS AGENTS [None]
